FAERS Safety Report 7805362-0 (Version None)
Quarter: 2011Q4

REPORT INFORMATION
  Report Type: 
  Country: None (occurrence: None)
  Receive Date: 20111010
  Receipt Date: 20110929
  Transmission Date: 20120403
  Serious: Yes (Hospitalization, Other)
  Sender: FDA-Public Use
  Company Number: JP-CELGENEUS-087-21880-10112248

PATIENT
  Sex: Female

DRUGS (46)
  1. REVLIMID [Suspect]
     Dosage: 10 MILLIGRAM
     Route: 048
     Dates: start: 20110303, end: 20110307
  2. DEXAMETHASONE [Suspect]
     Dosage: 40 MILLIGRAM
     Route: 048
     Dates: start: 20101019, end: 20101022
  3. DEXAMETHASONE [Suspect]
     Dosage: 40 MILLIGRAM
     Route: 048
     Dates: start: 20101026, end: 20101029
  4. CEREKINON [Concomitant]
     Dosage: 300 MILLIGRAM
     Route: 048
     Dates: start: 20101126, end: 20101202
  5. NEO MINOPHAGEN [Concomitant]
     Dosage: 20 MILLILITER
     Route: 041
     Dates: start: 20101206, end: 20101206
  6. NEO MINOPHAGEN [Concomitant]
     Dosage: 20 MILLILITER
     Route: 041
     Dates: start: 20110107, end: 20110107
  7. REVLIMID [Suspect]
     Dosage: 25 MILLIGRAM
     Route: 048
     Dates: start: 20101109, end: 20101112
  8. REVLIMID [Suspect]
     Dosage: 25 MILLIGRAM
     Route: 048
     Dates: start: 20110108, end: 20110113
  9. DEXAMETHASONE [Suspect]
     Dosage: 40 MILLIGRAM
     Route: 048
     Dates: start: 20110108, end: 20110111
  10. NEO MINOPHAGEN [Concomitant]
     Dosage: 20 MILLILITER
     Route: 041
     Dates: start: 20101213, end: 20101213
  11. NEO MINOPHAGEN [Concomitant]
     Dosage: 20 MILLILITER
     Route: 041
     Dates: start: 20101216, end: 20101216
  12. DEXAMETHASONE [Suspect]
     Indication: MULTIPLE MYELOMA
     Dosage: 40 MILLIGRAM
     Route: 048
     Dates: start: 20101012, end: 20101015
  13. DEXAMETHASONE [Suspect]
     Dosage: 40 MILLIGRAM
     Route: 048
     Dates: start: 20110116, end: 20110119
  14. DEXAMETHASONE [Suspect]
     Dosage: 40 MILLIGRAM
     Route: 048
     Dates: start: 20110303, end: 20110306
  15. CEFAZOLIN SODIUM [Concomitant]
     Indication: DISEASE COMPLICATION
     Dosage: 3 GRAM
     Route: 048
     Dates: start: 20101012
  16. GOSHA-JINKI-GAN [Concomitant]
     Dosage: 3 PACKETS
     Route: 048
     Dates: start: 20101012
  17. ASPIRIN [Concomitant]
     Indication: PROPHYLAXIS
     Dosage: 100 MILLIGRAM
     Route: 048
     Dates: start: 20101012, end: 20101021
  18. NEO MINOPHAGEN [Concomitant]
     Dosage: 20 MILLILITER
     Route: 041
     Dates: start: 20101224, end: 20101224
  19. REVLIMID [Suspect]
     Dosage: 5 MILLIGRAM
     Route: 048
     Dates: start: 20110318, end: 20110319
  20. DEXAMETHASONE [Suspect]
     Dosage: 40 MILLIGRAM
     Route: 048
     Dates: start: 20101109, end: 20101128
  21. SULFAMETHOXAZOLE [Concomitant]
     Indication: PROPHYLAXIS
     Dosage: 1 TABLET
     Route: 048
     Dates: start: 20101012
  22. MAXIPIME [Concomitant]
     Route: 065
     Dates: start: 20101230, end: 20110104
  23. REVLIMID [Suspect]
     Indication: MULTIPLE MYELOMA
     Dosage: 25 MILLIGRAM
     Route: 048
     Dates: start: 20101012, end: 20101101
  24. REVLIMID [Suspect]
     Dosage: 10 MILLIGRAM
     Route: 048
     Dates: start: 20110412, end: 20110412
  25. REVLIMID [Suspect]
     Dosage: 25 MILLIGRAM
     Route: 048
     Dates: start: 20101217, end: 20101227
  26. REVLIMID [Suspect]
     Dosage: 25 MILLIGRAM
     Route: 048
     Dates: start: 20110116, end: 20110120
  27. REVLIMID [Suspect]
     Dosage: 10 MILLIGRAM
     Route: 048
     Dates: start: 20110326, end: 20110326
  28. REVLIMID [Suspect]
     Dosage: 10 MILLIGRAM
     Route: 048
     Dates: start: 20110329, end: 20110329
  29. REVLIMID [Suspect]
     Dosage: 10 MILLIGRAM
     Route: 048
     Dates: start: 20110401, end: 20110401
  30. REVLIMID [Suspect]
     Dosage: 10 MILLIGRAM
     Route: 048
     Dates: start: 20110415, end: 20110415
  31. PROCHLORPERAZINE [Concomitant]
     Indication: DISEASE COMPLICATION
     Dosage: 15 MILLIGRAM
     Route: 048
     Dates: start: 20101012
  32. NEO MINOPHAGEN [Concomitant]
     Dosage: 20 MILLILITER
     Route: 041
     Dates: start: 20101210, end: 20101210
  33. NEO MINOPHAGEN [Concomitant]
     Dosage: 20 MILLILITER
     Route: 041
     Dates: start: 20101227, end: 20101227
  34. NEO MINOPHAGEN [Concomitant]
     Dosage: 20 MILLILITER
     Route: 041
     Dates: start: 20101229, end: 20101229
  35. NEO MINOPHAGEN [Concomitant]
     Dosage: 20 MILLILITER
     Route: 041
     Dates: start: 20101231, end: 20101231
  36. REVLIMID [Suspect]
     Dosage: 10 MILLIGRAM
     Route: 048
     Dates: start: 20110322, end: 20110322
  37. REVLIMID [Suspect]
     Dosage: 15 MILLIGRAM
     Route: 048
     Dates: start: 20110404, end: 20110404
  38. REVLIMID [Suspect]
     Dosage: 15 MILLIGRAM
     Route: 048
     Dates: start: 20110408, end: 20110408
  39. DEXAMETHASONE [Suspect]
     Dosage: 40 MILLIGRAM
     Route: 048
     Dates: start: 20101207, end: 20101226
  40. URSO 250 [Concomitant]
     Indication: DISEASE COMPLICATION
     Dosage: 600 MILLIGRAM
     Route: 048
     Dates: start: 20101012, end: 20101025
  41. REVLIMID [Suspect]
     Dosage: 25 MILLIGRAM
     Route: 048
     Dates: start: 20101120, end: 20101127
  42. RABEPRAZOLE SODIUM [Concomitant]
     Indication: PROPHYLAXIS
     Dosage: 10 MILLIGRAM
     Route: 048
     Dates: start: 20101012
  43. DIAZEPAM [Concomitant]
     Dosage: 1 MILLIGRAM
     Route: 048
     Dates: start: 20101019, end: 20101026
  44. OXYCONTIN [Concomitant]
     Dosage: 10 MILLIGRAM
     Route: 048
     Dates: start: 20101006
  45. NEO MINOPHAGEN [Concomitant]
     Indication: PROPHYLAXIS
     Dosage: 20 MILLILITER
     Route: 041
     Dates: start: 20101118, end: 20101118
  46. NEO MINOPHAGEN [Concomitant]
     Dosage: 20 MILLILITER
     Route: 041
     Dates: start: 20101223, end: 20101223

REACTIONS (7)
  - RASH [None]
  - UPPER RESPIRATORY TRACT INFLAMMATION [None]
  - THROMBOCYTOPENIA [None]
  - TUMOUR LYSIS SYNDROME [None]
  - NEUTROPENIA [None]
  - PLATELET COUNT DECREASED [None]
  - NEUTROPHIL COUNT DECREASED [None]
